FAERS Safety Report 5266502-3 (Version None)
Quarter: 2007Q1

REPORT INFORMATION
  Report Type: 
  Country: None (occurrence: None)
  Receive Date: 20070315
  Receipt Date: 20070306
  Transmission Date: 20070707
  Serious: Yes (Disabling)
  Sender: FDA-Public Use
  Company Number: GB-BAXTER-2007BH002891

PATIENT
  Age: 76 Year
  Sex: Female
  Weight: 61 kg

DRUGS (13)
  1. SUPRANE [Suspect]
     Indication: DRUG USE FOR UNKNOWN INDICATION
     Dosage: DOSE UNIT:UNKNOWN
     Route: 055
  2. PATENT BLUE V [Suspect]
     Indication: DRUG USE FOR UNKNOWN INDICATION
     Dosage: DOSE UNIT:UNKNOWN
     Route: 065
  3. CEFUROXIME [Concomitant]
  4. CHONDROITIN [Concomitant]
  5. EPHEDRINE SUL CAP [Concomitant]
  6. FENTANYL [Concomitant]
  7. DALTEPARIN SODIUM [Concomitant]
     Dosage: DOSE UNIT:UNKNOWN
  8. GLUCOSAMINE [Concomitant]
  9. MIDAZOLAM HCL [Concomitant]
     Route: 042
  10. ACETAMINOPHEN [Concomitant]
     Route: 042
  11. PROPOFOL [Concomitant]
  12. REMIFENTANIL [Concomitant]
     Route: 042
  13. THYROXIN [Concomitant]

REACTIONS (3)
  - HYPERLIPIDAEMIA [None]
  - LIVER FUNCTION TEST ABNORMAL [None]
  - VOMITING [None]
